FAERS Safety Report 7460519-6 (Version None)
Quarter: 2011Q2

REPORT INFORMATION
  Report Type: 
  Country: None (occurrence: None)
  Receive Date: 20110505
  Receipt Date: 20090208
  Transmission Date: 20111010
  Serious: Yes (Death, Hospitalization)
  Sender: FDA-Public Use
  Company Number: US-BAYER-200910075NA

PATIENT
  Age: 79 Year
  Sex: Female
  Weight: 72.562 kg

DRUGS (17)
  1. CIPROFLOXACIN [Concomitant]
     Dosage: 250 MG, BID
     Route: 048
     Dates: start: 20051016
  2. MILRINONE [Concomitant]
     Dosage: UNK
     Route: 042
     Dates: start: 20051018
  3. TRASYLOL [Suspect]
     Indication: CORONARY ARTERY BYPASS
     Dosage: INITIAL DOSE NOT SPECIFIED. LOADING DOSE 200ML THEN 50ML/HR.
     Route: 042
     Dates: start: 20051018, end: 20051018
  4. HEPARIN [Concomitant]
     Dosage: UNK
     Route: 042
     Dates: start: 20051017
  5. BENADRYL [Concomitant]
     Dosage: UNK
     Route: 042
     Dates: start: 20051018
  6. NEXIUM [Concomitant]
     Dosage: 40 MG, QD
     Route: 048
  7. LISINOPRIL [Concomitant]
     Dosage: 5 MG, QD
     Route: 048
     Dates: start: 20051017
  8. FUROSEMIDE [Concomitant]
     Dosage: 20 MG, QD
     Route: 048
     Dates: start: 20051017
  9. VANCOMYCIN [Concomitant]
     Dosage: UNK
     Route: 042
     Dates: start: 20051018
  10. NITROGLYCERIN [Concomitant]
     Dosage: 10MCG/MIN
     Route: 042
  11. TORADOL [Concomitant]
  12. DOPAMINE HCL [Concomitant]
     Dosage: UNK
     Route: 042
     Dates: start: 20051018
  13. TRASYLOL [Suspect]
     Indication: MITRAL VALVE REPLACEMENT
  14. PREDNISONE [Concomitant]
     Dosage: 15 MG, QD
     Route: 048
     Dates: end: 20051015
  15. ASPIRIN [Concomitant]
     Dosage: 81 MG, QD
     Route: 048
     Dates: end: 20051015
  16. PROTAMINE SULFATE [Concomitant]
     Dosage: UNK
     Route: 042
     Dates: start: 20051018
  17. ATORVASTATIN CALCIUM [Concomitant]
     Dosage: UNK
     Route: 048
     Dates: start: 20051017

REACTIONS (6)
  - RENAL INJURY [None]
  - INJURY [None]
  - PAIN [None]
  - RENAL FAILURE [None]
  - RESPIRATORY FAILURE [None]
  - UNEVALUABLE EVENT [None]
